FAERS Safety Report 6502866-8 (Version None)
Quarter: 2009Q4

REPORT INFORMATION
  Report Type: 
  Country: None (occurrence: None)
  Receive Date: 20091201
  Receipt Date: 20090406
  Transmission Date: 20100525
  Serious: Yes (Hospitalization)
  Sender: FDA-Public Use
  Company Number: 190900USA

PATIENT
  Age: 19 Year
  Sex: Female

DRUGS (1)
  1. CALCITRIOL [Suspect]
     Indication: HYPOPARATHYROIDISM
     Dosage: FOUR TABLETS A DAY, ORAL
     Route: 048

REACTIONS (2)
  - BLOOD CALCIUM DECREASED [None]
  - DRUG EFFECT DECREASED [None]
